FAERS Safety Report 15697074 (Version 2)
Quarter: 2018Q4

REPORT INFORMATION
  Report Type: Spontaneous
  Country: US (occurrence: US)
  Receive Date: 20181206
  Receipt Date: 20181231
  Transmission Date: 20190205
  Serious: No
  Sender: FDA-Public Use
  Company Number: US-PFIZER INC-2018496430

PATIENT
  Age: 49 Year
  Sex: Female
  Weight: 100 kg

DRUGS (1)
  1. DESVENLAFAXINE SUCCINATE MONOHYDRATE [Suspect]
     Active Substance: DESVENLAFAXINE SUCCINATE
     Indication: DEPRESSION
     Dosage: 100 MG, DAILY
     Dates: start: 201612, end: 20180216

REACTIONS (6)
  - Diarrhoea [Unknown]
  - Tension headache [Unknown]
  - Drug ineffective [Unknown]
  - Nausea [Unknown]
  - Drug intolerance [Unknown]
  - Irritability [Unknown]

NARRATIVE: CASE EVENT DATE: 20171006
